FAERS Safety Report 9247925 (Version 2)
Quarter: 2013Q2

REPORT INFORMATION
  Report Type: Spontaneous
  Country: US (occurrence: US)
  Receive Date: 20130423
  Receipt Date: 20130423
  Transmission Date: 20140414
  Serious: No
  Sender: FDA-Public Use
  Company Number: US-MYLANLABS-2012S1019573

PATIENT
  Age: 85 Year
  Sex: Female

DRUGS (7)
  1. IPRATROPIUM BROMIDE AND ALBUTEROL SULFATE INHALATION SOLUTION [Suspect]
     Indication: CHRONIC OBSTRUCTIVE PULMONARY DISEASE
     Route: 055
     Dates: start: 201209, end: 201209
  2. LORAZEPAM [Concomitant]
  3. LEVOTHYROXINE [Concomitant]
  4. HCTZ [Concomitant]
  5. ASPIRIN [Concomitant]
  6. FIBER [Concomitant]
  7. ALEVE [Concomitant]

REACTIONS (3)
  - Fall [Recovered/Resolved]
  - Balance disorder [Recovered/Resolved]
  - Unevaluable event [Recovered/Resolved]
